FAERS Safety Report 5496077-5 (Version None)
Quarter: 2007Q4

REPORT INFORMATION
  Report Type: 
  Country: None (occurrence: None)
  Receive Date: 20071025
  Receipt Date: 20070119
  Transmission Date: 20080405
  Serious: No
  Sender: FDA-Public Use
  Company Number: A0636345A

PATIENT
  Age: 40 Year
  Sex: Female

DRUGS (4)
  1. ADVAIR DISKUS 100/50 [Suspect]
     Indication: ASTHMA
     Dosage: 1PUFF TWICE PER DAY
     Route: 055
  2. SEREVENT [Suspect]
     Indication: ASTHMA
     Route: 055
  3. SINGULAIR [Concomitant]
  4. SYNTHROID [Concomitant]

REACTIONS (9)
  - COUGH [None]
  - EYE SWELLING [None]
  - INFLAMMATION [None]
  - LIP BLISTER [None]
  - OBSTRUCTIVE AIRWAYS DISORDER [None]
  - PHARYNGEAL OEDEMA [None]
  - SKIN DISORDER [None]
  - SKIN EXFOLIATION [None]
  - VOMITING [None]
